FAERS Safety Report 4283426-9 (Version None)
Quarter: 2004Q1

REPORT INFORMATION
  Report Type: 
  Country: None (occurrence: None)
  Receive Date: 20040129
  Receipt Date: 20040119
  Transmission Date: 20041129
  Serious: Yes (Hospitalization)
  Sender: FDA-Public Use
  Company Number: 2004GB00109

PATIENT
  Age: 79 Year
  Sex: Female

DRUGS (5)
  1. OMEPRAZOLE [Suspect]
     Indication: PROPHYLAXIS AGAINST GASTROINTESTINAL ULCER
     Dosage: 20 MG UNK PO
     Dates: start: 20010101, end: 20031121
  2. AMLODPINE [Concomitant]
  3. ATENOLOL [Concomitant]
  4. SIMVASTATIN [Concomitant]
  5. ALENDRONATE SODIUM [Concomitant]

REACTIONS (6)
  - EOSINOPHIL COUNT INCREASED [None]
  - HAEMATOCRIT DECREASED [None]
  - HAEMOGLOBIN DECREASED [None]
  - RED BLOOD CELL COUNT DECREASED [None]
  - RENAL FAILURE [None]
  - THROMBOCYTOPENIA [None]
